FAERS Safety Report 18068829 (Version 4)
Quarter: 2020Q3

REPORT INFORMATION
  Report Type: Spontaneous
  Country: US (occurrence: US)
  Receive Date: 20200724
  Receipt Date: 20200917
  Transmission Date: 20201103
  Serious: Yes (Other)
  Sender: FDA-Public Use
  Company Number: US-TAKEDA-2020TUS031969

PATIENT
  Age: 20 Year
  Sex: Female

DRUGS (2)
  1. ALUNBRIG [Suspect]
     Active Substance: BRIGATINIB
     Indication: HEPATOCELLULAR CARCINOMA
     Dosage: 90 MILLIGRAM
     Route: 065
     Dates: start: 20200722
  2. ALUNBRIG [Suspect]
     Active Substance: BRIGATINIB
     Dosage: 180 MILLIGRAM, QD
     Route: 065
     Dates: end: 20200915

REACTIONS (6)
  - Vomiting [Unknown]
  - Vascular stent thrombosis [Not Recovered/Not Resolved]
  - Hepatocellular carcinoma [Unknown]
  - Dry skin [Unknown]
  - Off label use [Unknown]
  - Nausea [Unknown]

NARRATIVE: CASE EVENT DATE: 20200723
